FAERS Safety Report 17909717 (Version 1)
Quarter: 2020Q2

REPORT INFORMATION
  Report Type: Spontaneous
  Country: ES (occurrence: ES)
  Receive Date: 20200617
  Receipt Date: 20200617
  Transmission Date: 20200714
  Serious: Yes (Life-Threatening, Hospitalization)
  Sender: FDA-Public Use
  Company Number: ES-BAUSCH-BL-2020-017117

PATIENT
  Age: 33 Year
  Sex: Female
  Weight: 60 kg

DRUGS (3)
  1. OLANZAPINA [Interacting]
     Active Substance: OLANZAPINE
     Indication: SUICIDE ATTEMPT
     Dosage: 5 MG 3 BLISTER
     Route: 048
     Dates: start: 20200603, end: 20200603
  2. CLONAZEPAM. [Interacting]
     Active Substance: CLONAZEPAM
     Indication: SUICIDE ATTEMPT
     Dosage: 0.5 MG 2 BLISTER
     Route: 048
     Dates: start: 20200603, end: 20200603
  3. LORAZEPAM. [Suspect]
     Active Substance: LORAZEPAM
     Indication: SUICIDE ATTEMPT
     Dosage: 1 MG 1 BLISTER
     Route: 048
     Dates: start: 20200603, end: 20200603

REACTIONS (2)
  - Pneumonia aspiration [Recovering/Resolving]
  - Depressed level of consciousness [Recovering/Resolving]

NARRATIVE: CASE EVENT DATE: 20200603
